FAERS Safety Report 25448443 (Version 2)
Quarter: 2025Q2

REPORT INFORMATION
  Report Type: Report from Study
  Country: US (occurrence: US)
  Receive Date: 20250618
  Receipt Date: 20250623
  Transmission Date: 20250716
  Serious: Yes (Other)
  Sender: ACADIA PHARMACEUTICALS
  Company Number: US-ACADIA PHARMACEUTICALS INC.-ACA-2025-PIM-007139

PATIENT
  Sex: Male

DRUGS (5)
  1. NUPLAZID [Suspect]
     Active Substance: PIMAVANSERIN TARTRATE
     Indication: Parkinson^s disease
     Dosage: 34 MILLIGRAM, QD
     Route: 048
  2. SEROQUEL [Concomitant]
     Active Substance: QUETIAPINE FUMARATE
  3. ESCITALOPRAM OXALATE [Concomitant]
     Active Substance: ESCITALOPRAM OXALATE
  4. AMANTADINE [Concomitant]
     Active Substance: AMANTADINE
  5. SINEMET [Concomitant]
     Active Substance: CARBIDOPA\LEVODOPA

REACTIONS (9)
  - Suicidal ideation [Unknown]
  - Adverse event [Unknown]
  - Hypersomnia [Unknown]
  - Limb discomfort [Unknown]
  - Bradykinesia [Unknown]
  - Abnormal dreams [Unknown]
  - Self-injurious ideation [Recovering/Resolving]
  - Gait disturbance [Unknown]
  - Confusional state [Unknown]
